FAERS Safety Report 4978280-3 (Version None)
Quarter: 2006Q2

REPORT INFORMATION
  Report Type: 
  Country: None (occurrence: None)
  Receive Date: 20060417
  Receipt Date: 20060403
  Transmission Date: 20061013
  Serious: Yes (Hospitalization)
  Sender: FDA-Public Use
  Company Number: 2006S1000050

PATIENT
  Age: 50 Year
  Sex: Female

DRUGS (20)
  1. CUBICIN [Suspect]
     Indication: OSTEOMYELITIS
     Dosage: 340 MG;Q24H;IV
     Route: 042
  2. RIFAMPIN [Suspect]
     Indication: OSTEOMYELITIS
     Dates: start: 20060101, end: 20060101
  3. VANCOMYCIN [Suspect]
     Indication: OSTEOMYELITIS
     Dates: start: 20060214, end: 20060306
  4. PIPERACILLIN SODIUM/TAZOBACTAM SODIUM [Suspect]
     Indication: OSTEOMYELITIS
  5. VANCOMYCIN [Concomitant]
  6. RIFAMPIN [Concomitant]
  7. ROCEPHIN [Concomitant]
  8. INSULIN [Concomitant]
  9. CAPTOPRIL [Concomitant]
  10. ATORVASTATIN CALCIUM [Concomitant]
  11. METOCLOPRAMIDE [Concomitant]
  12. VALPROATE SODIUM [Concomitant]
  13. ACETYLSALICYLIC ACID SRT [Concomitant]
  14. GLUCOSAMINE [Concomitant]
  15. LEVOTHYROXINE SODIUM [Concomitant]
  16. PSEUDOEPHEDRINE HCL [Concomitant]
  17. ESTROGENS [Concomitant]
  18. CALCIUM CITRATE [Concomitant]
  19. VITAMIN D [Concomitant]
  20. PIPERACILLIN SODIUM/TAZOBACTAM SODIUM [Concomitant]

REACTIONS (6)
  - CHILLS [None]
  - EOSINOPHILIA [None]
  - RASH [None]
  - RENAL FAILURE [None]
  - SKIN EXFOLIATION [None]
  - SWELLING [None]
